FAERS Safety Report 10369006 (Version 1)
Quarter: 2014Q3

REPORT INFORMATION
  Report Type: Spontaneous
  Country: US (occurrence: US)
  Receive Date: 20140807
  Receipt Date: 20140807
  Transmission Date: 20150326
  Serious: No
  Sender: FDA-Public Use
  Company Number: US-BAYER-2014-118492

PATIENT
  Age: 32 Year
  Sex: Female

DRUGS (1)
  1. MIRENA [Suspect]
     Active Substance: LEVONORGESTREL
     Indication: CONTRACEPTION
     Dosage: 20 MCG/24HR, CONT
     Route: 015
     Dates: start: 201401, end: 20140714

REACTIONS (6)
  - Weight abnormal [Recovered/Resolved with Sequelae]
  - Breast swelling [Not Recovered/Not Resolved]
  - Back pain [Recovered/Resolved]
  - Vaginal discharge [Recovered/Resolved]
  - Abdominal pain lower [Not Recovered/Not Resolved]
  - Breast pain [Not Recovered/Not Resolved]

NARRATIVE: CASE EVENT DATE: 2014
